FAERS Safety Report 5943564-9 (Version None)
Quarter: 2008Q4

REPORT INFORMATION
  Report Type: 
  Country: None (occurrence: None)
  Receive Date: 20081106
  Receipt Date: 20081027
  Transmission Date: 20090506
  Serious: Yes (Death)
  Sender: FDA-Public Use
  Company Number: US-PURDUE-USA_2008_0035649

PATIENT
  Age: 69 Year
  Sex: Male

DRUGS (4)
  1. PROZAC                             /00724401/ [Concomitant]
     Indication: DEPRESSION
     Dosage: 40 MG, DAILY
     Dates: start: 20071105
  2. PERCOCET [Concomitant]
     Indication: PAIN
     Dates: start: 20030101
  3. DILANTIN                           /00017401/ [Concomitant]
     Indication: DRUG USE FOR UNKNOWN INDICATION
     Dosage: 200 MG, UNK
  4. OXYCONTIN [Suspect]
     Indication: PAIN
     Dosage: 80 MG, BID
     Dates: start: 20030101

REACTIONS (1)
  - ACUTE MYOCARDIAL INFARCTION [None]
